FAERS Safety Report 5499277-3 (Version None)
Quarter: 2007Q4

REPORT INFORMATION
  Report Type: 
  Country: None (occurrence: None)
  Receive Date: 20071026
  Receipt Date: 20071023
  Transmission Date: 20080405
  Serious: Yes (Other)
  Sender: FDA-Public Use
  Company Number: IT-JNJFOC-20071006042

PATIENT
  Age: 3 Year
  Sex: Male

DRUGS (1)
  1. IBUPROFEN [Suspect]
     Indication: EAR PAIN
     Dosage: ^SEVERAL DOSES^

REACTIONS (6)
  - CONVULSION [None]
  - COORDINATION ABNORMAL [None]
  - DIPLOPIA [None]
  - HYPOTONIA [None]
  - OVERDOSE [None]
  - VOMITING [None]
